FAERS Safety Report 5204823-0 (Version None)
Quarter: 2007Q1

REPORT INFORMATION
  Report Type: 
  Country: None (occurrence: None)
  Receive Date: 20070110
  Receipt Date: 20060726
  Transmission Date: 20070707
  Serious: No
  Sender: FDA-Public Use
  Company Number: US-BRISTOL-MYERS SQUIBB COMPANY-13455605

PATIENT
  Age: 51 Year
  Sex: Female
  Weight: 109 kg

DRUGS (7)
  1. ABILIFY [Suspect]
     Indication: AFFECTIVE DISORDER
     Route: 048
     Dates: start: 20060601, end: 20060720
  2. SYNTHROID [Concomitant]
     Dates: start: 19930101
  3. COZAAR [Concomitant]
     Dates: start: 19930101
  4. ZOLOFT [Concomitant]
     Dosage: DURATION OF THERAPY:  ^FOR YEARS^
  5. LORAZEPAM [Concomitant]
  6. AMBIEN [Concomitant]
  7. LAMICTAL [Concomitant]
     Dosage: DURATION OF THERAY:  1 TO 1.5 YEARS

REACTIONS (2)
  - MUSCLE SPASMS [None]
  - PAIN IN EXTREMITY [None]
